FAERS Safety Report 4707608-4 (Version None)
Quarter: 2005Q3

REPORT INFORMATION
  Report Type: 
  Country: None (occurrence: None)
  Receive Date: 20050705
  Receipt Date: 20050616
  Transmission Date: 20060218
  Serious: Yes (Hospitalization)
  Sender: FDA-Public Use
  Company Number: A030535

PATIENT
  Age: 67 Year
  Sex: Male
  Weight: 106 kg

DRUGS (4)
  1. DOXAZOSIN (DOXAZOSIN) [Suspect]
     Indication: HYPERTENSION
     Dosage: 4 MG (4 MG 1 IN 1 D) ORAL
     Route: 048
     Dates: start: 19990915, end: 19990917
  2. ATENOLOL [Suspect]
     Indication: HYPERTENSION
     Dosage: 100 MG (100 MG 1 IN 1 D) ORAL
     Route: 048
     Dates: start: 19990611, end: 20031206
  3. BENDROFLUMETHIAZIDE/POTASSIUM CHLORIDE(BENDROFLUMETHIAZIDE, POTASSIUM [Suspect]
     Indication: HYPERTENSION
     Dosage: 1.25 MG (1.25 MG 1 IN 1 D)ORAL
     Route: 048
     Dates: start: 19990906, end: 20031206
  4. LOSEC MUPS (OMEPRAZOLE MAGNESIUM) [Concomitant]

REACTIONS (7)
  - BLOOD PRESSURE INCREASED [None]
  - CEREBRAL ISCHAEMIA [None]
  - CONVULSION [None]
  - FALL [None]
  - LIMB INJURY [None]
  - LOSS OF CONSCIOUSNESS [None]
  - SYNCOPE [None]
